FAERS Safety Report 9325715 (Version 1)
Quarter: 2013Q2

REPORT INFORMATION
  Report Type: Spontaneous
  Country: US (occurrence: US)
  Receive Date: 20130604
  Receipt Date: 20130604
  Transmission Date: 20140414
  Serious: Yes (Other)
  Sender: FDA-Public Use
  Company Number: US-SANOFI-AVENTIS-2013SA055334

PATIENT
  Age: 62 Year
  Sex: Male

DRUGS (4)
  1. LANTUS SOLOSTAR [Suspect]
     Indication: TYPE 2 DIABETES MELLITUS
     Dosage: 4 MG BID IN FEB 2003 DOSE:72 UNIT(S)
     Route: 058
     Dates: start: 200808, end: 201303
  2. SOLOSTAR [Suspect]
     Indication: TYPE 2 DIABETES MELLITUS
     Dates: start: 200808, end: 201303
  3. AMARYL [Suspect]
     Indication: TYPE 2 DIABETES MELLITUS
     Dates: start: 2003
  4. METFORMIN [Concomitant]

REACTIONS (8)
  - Myalgia [Recovering/Resolving]
  - Gait disturbance [Recovering/Resolving]
  - Fall [Recovered/Resolved]
  - Impaired healing [Recovered/Resolved]
  - Arthralgia [Unknown]
  - Gait disturbance [Unknown]
  - Blood glucose increased [Unknown]
  - Tendon rupture [Recovered/Resolved]
